FAERS Safety Report 7001505-X (Version None)
Quarter: 2010Q3

REPORT INFORMATION
  Report Type: 
  Country: None (occurrence: None)
  Receive Date: 20100919
  Receipt Date: 20091103
  Transmission Date: 20110219
  Serious: Yes (Other)
  Sender: FDA-Public Use
  Company Number: GB-ACCORD-004115

PATIENT
  Age: 50 Year
  Sex: Male

DRUGS (4)
  1. MYCOPHENOLATE MOFETIL [Suspect]
     Indication: MORPHOEA
  2. PREDNISONE [Suspect]
     Dosage: 60.00 MG 1.00 PER 1.0 DAYS
  3. METHOTREXATE [Suspect]
     Indication: MORPHOEA
     Dosage: 15.00 MG-1.00 PER-1.OWEEKS
  4. METHYLPREDNISOLONE [Suspect]
     Indication: MORPHOEA
     Dosage: 1.00 G-1.00 / PER-1.0 DAY, INTRAVENOUS (NOT OTHERWISE SPECIFIED)
     Route: 042

REACTIONS (3)
  - BICYTOPENIA [None]
  - CONDITION AGGRAVATED [None]
  - MORPHOEA [None]
